FAERS Safety Report 5831129-9 (Version None)
Quarter: 2008Q3

REPORT INFORMATION
  Report Type: 
  Country: None (occurrence: None)
  Receive Date: 20080801
  Receipt Date: 20080416
  Transmission Date: 20090109
  Serious: No
  Sender: FDA-Public Use
  Company Number: US-BRISTOL-MYERS SQUIBB COMPANY-14154066

PATIENT
  Age: 63 Year
  Sex: Female
  Weight: 77 kg

DRUGS (8)
  1. COUMADIN [Suspect]
     Indication: AORTIC VALVE REPLACEMENT
     Dosage: 8MG DAILY IN 2000 AND FEB08,10MG 1 1/2TABS DAILY FOR 3DAYS A WEEK AND 10MG 1 TAB DAILY 4 DAYS
     Dates: start: 20000101
  2. NIFEDIPINE [Concomitant]
  3. LOPRESSOR [Concomitant]
  4. BENICAR HCT [Concomitant]
  5. IMURAN [Concomitant]
  6. VYTORIN [Concomitant]
  7. CELEBREX [Concomitant]
  8. TYLENOL [Concomitant]

REACTIONS (2)
  - DRUG INEFFECTIVE [None]
  - INTERNATIONAL NORMALISED RATIO FLUCTUATION [None]
